FAERS Safety Report 8783188 (Version 1)
Quarter: 2012Q4

REPORT INFORMATION
  Report Type: Report from Study
  Country: US (occurrence: US)
  Receive Date: 20120913
  Receipt Date: 20120913
  Transmission Date: 20130627
  Serious: No
  Sender: FDA-Public Use
  Company Number: US-VERTEX PHARMACEUTICAL INC.-AE-2012-009602

PATIENT
  Age: 61 Year
  Sex: Male
  Weight: 90.91 kg

DRUGS (7)
  1. INCIVEK [Suspect]
     Indication: HEPATITIS C
     Route: 048
     Dates: start: 201206
  2. XANAX [Concomitant]
     Route: 048
  3. AMBIEN [Concomitant]
     Route: 048
  4. LISINOPRIL [Concomitant]
     Route: 048
  5. METFORMIN [Concomitant]
     Route: 048
  6. GLYBURIDE [Concomitant]
     Route: 048
  7. CLONIDINE [Concomitant]
     Route: 048

REACTIONS (2)
  - Anorectal discomfort [Unknown]
  - Anal pruritus [Unknown]
